FAERS Safety Report 5010811-X (Version None)
Quarter: 2006Q2

REPORT INFORMATION
  Report Type: 
  Country: None (occurrence: None)
  Receive Date: 20060525
  Receipt Date: 20060421
  Transmission Date: 20061013
  Serious: Yes (Death, Hospitalization)
  Sender: FDA-Public Use
  Company Number: GB-NOVOPROD-252618

PATIENT
  Age: 73 Year
  Sex: Male
  Weight: 83 kg

DRUGS (23)
  1. LEVEMIR [Suspect]
     Indication: INSULIN-REQUIRING TYPE II DIABETES MELLITUS
     Dosage: 38 IU, QD
     Route: 058
     Dates: start: 20050628
  2. LEVEMIR [Suspect]
     Dosage: 44 IU, QD
     Dates: start: 20050601, end: 20050706
  3. LEVEMIR [Suspect]
     Dosage: 30 IU, QD
     Dates: start: 20050713, end: 20050721
  4. TARIVID                            /00731801/ [Concomitant]
     Dosage: 400 MG, QD
     Route: 048
     Dates: start: 20050620, end: 20050620
  5. NEXIUM [Concomitant]
     Dosage: 20 MG, QD
     Route: 048
     Dates: start: 20050628, end: 20050705
  6. PRAVASTATIN [Concomitant]
     Dosage: 10 MG, QD
     Route: 048
     Dates: start: 20050623, end: 20050705
  7. FLUOXETINE [Concomitant]
     Dosage: 20 MG, QD
     Route: 048
     Dates: start: 20050620, end: 20050705
  8. ZIMOVANE [Concomitant]
     Dosage: 7.5 MG, QD
     Route: 048
     Dates: start: 20050620, end: 20050705
  9. ACTRAPID [Concomitant]
     Indication: INSULIN-REQUIRING TYPE II DIABETES MELLITUS
     Dates: start: 20050620
  10. INSULATARD NPH HUMAN [Concomitant]
     Indication: INSULIN-REQUIRING TYPE II DIABETES MELLITUS
     Dates: start: 20050620
  11. METOPROLOL TARTRATE [Concomitant]
     Dosage: 100 MG, QD
     Route: 048
     Dates: start: 20050620, end: 20050705
  12. BUMETANIDE [Concomitant]
     Dosage: 1 MG, QD
     Route: 048
     Dates: start: 20050627, end: 20050704
  13. KLACID                             /00984601/ [Concomitant]
     Dosage: 1000 MG, QD
     Route: 048
     Dates: start: 20050713, end: 20050721
  14. AUGMENTIN                          /00756801/ [Concomitant]
     Dosage: 1250 MG, QD
     Route: 048
     Dates: start: 20050717, end: 20050721
  15. TEICOPLANIN [Concomitant]
     Dosage: 600 MG, UNK
     Route: 042
     Dates: start: 20050720, end: 20050721
  16. SLOW-K [Concomitant]
  17. NOVORAPID PENFILL [Concomitant]
     Indication: INSULIN-REQUIRING TYPE II DIABETES MELLITUS
     Route: 058
     Dates: start: 20050628, end: 20050706
  18. ZOPICLONE [Concomitant]
     Dosage: 75 MG, QD
     Route: 048
     Dates: start: 20050620, end: 20050705
  19. ROSUVASTATIN [Concomitant]
     Dosage: 10 MG, QD
     Route: 048
     Dates: start: 20050623, end: 20050705
  20. MICROLAX                           /00285401/ [Concomitant]
  21. TAZOCIN [Concomitant]
     Dosage: 4.5 G, QD
     Route: 042
     Dates: start: 20050706, end: 20050718
  22. METRONIDAZOLE [Concomitant]
     Dosage: 500 MG, QD
     Route: 048
     Dates: start: 20050706, end: 20050718
  23. DIGOXIN [Concomitant]
     Dosage: 125 MG, QD
     Route: 048
     Dates: start: 20050709, end: 20050721

REACTIONS (5)
  - CARDIAC ARREST [None]
  - CHEST PAIN [None]
  - DIABETES MELLITUS INADEQUATE CONTROL [None]
  - INTESTINAL OBSTRUCTION [None]
  - RESPIRATORY TRACT INFECTION [None]
